FAERS Safety Report 8478653-0 (Version None)
Quarter: 2012Q2

REPORT INFORMATION
  Report Type: 
  Country: None (occurrence: None)
  Receive Date: 20120629
  Receipt Date: 20120627
  Transmission Date: 20120825
  Serious: Yes (Other)
  Sender: FDA-Public Use
  Company Number: US-PFIZER INC-2012155454

PATIENT
  Sex: Female
  Weight: 72 kg

DRUGS (9)
  1. INDERAL LA [Concomitant]
     Indication: MITRAL VALVE PROLAPSE
     Dosage: 60 MG, DAILY
  2. LIPITOR [Suspect]
     Indication: BLOOD CHOLESTEROL INCREASED
     Dosage: 20 MG, DAILY
  3. PREMARIN [Suspect]
     Dosage: 0.9 MG, DAILY
  4. INDERAL LA [Concomitant]
     Indication: RHEUMATIC HEART DISEASE
  5. XANAX [Concomitant]
     Indication: NERVOUS SYSTEM DISORDER
     Dosage: 1 MG, 2X/DAY
  6. ZOLOFT [Suspect]
     Indication: DEPRESSION
     Dosage: 100 MG, DAILY
  7. MOBIC [Suspect]
     Indication: FIBROMYALGIA
     Dosage: 7.5 MG, 2X/DAY
     Dates: start: 20050101
  8. FLEXERIL [Concomitant]
     Indication: MYALGIA
     Dosage: 10 MG, 2X/DAY
  9. PREMARIN [Suspect]
     Indication: HORMONE REPLACEMENT THERAPY
     Dosage: 1.25 MG, DAILY
     Dates: start: 19870101

REACTIONS (4)
  - MUSCULOSKELETAL PAIN [None]
  - GASTRIC DISORDER [None]
  - CONDITION AGGRAVATED [None]
  - FALL [None]
